FAERS Safety Report 17942567 (Version 1)
Quarter: 2020Q2

REPORT INFORMATION
  Report Type: Spontaneous
  Country: CN (occurrence: CN)
  Receive Date: 20200624
  Receipt Date: 20200624
  Transmission Date: 20200714
  Serious: Yes (Other)
  Sender: FDA-Public Use
  Company Number: CN-PFIZER INC-2020240033

PATIENT
  Age: 46 Year
  Sex: Female
  Weight: 55 kg

DRUGS (2)
  1. PHARMORUBICIN [Suspect]
     Active Substance: EPIRUBICIN
     Indication: BREAST CANCER
     Dosage: 70.00000 MG, 1X/DAY
     Route: 041
     Dates: start: 20200523, end: 20200523
  2. ENDOXAN-BAXTER [Suspect]
     Active Substance: CYCLOPHOSPHAMIDE
     Indication: BREAST CANCER
     Dosage: 0.900000 G, 1X/DAY
     Route: 041
     Dates: start: 20200523, end: 20200523

REACTIONS (5)
  - Platelet count decreased [Unknown]
  - White blood cell count decreased [Recovered/Resolved]
  - Febrile infection [Unknown]
  - Bone marrow failure [Unknown]
  - Neutrophil count decreased [Recovered/Resolved]

NARRATIVE: CASE EVENT DATE: 202006
